FAERS Safety Report 4939281-4 (Version None)
Quarter: 2006Q1

REPORT INFORMATION
  Report Type: 
  Country: None (occurrence: None)
  Receive Date: 20060306
  Receipt Date: 20060222
  Transmission Date: 20060701
  Serious: Yes (Life-Threatening, Hospitalization, Other)
  Sender: FDA-Public Use
  Company Number: JP_050707053

PATIENT
  Age: 26 Year
  Sex: Female
  Weight: 50 kg

DRUGS (4)
  1. ZYPREXA [Suspect]
     Dosage: 160 MG, DAILY (1/D), ORAL
     Route: 048
     Dates: start: 20050707, end: 20050707
  2. LULLAN (PEROSPIRONE HYDROCHLORIDE) [Concomitant]
  3. HALCION [Concomitant]
  4. VEGETAMIN B [Concomitant]

REACTIONS (12)
  - ACUTE RESPIRATORY DISTRESS SYNDROME [None]
  - HAEMODIALYSIS [None]
  - INTENTIONAL DRUG MISUSE [None]
  - INTENTIONAL OVERDOSE [None]
  - LUNG DISORDER [None]
  - PNEUMONIA ASPIRATION [None]
  - PULMONARY CAVITATION [None]
  - PULMONARY FIBROSIS [None]
  - PULMONARY HYPERTENSION [None]
  - PULMONARY OEDEMA [None]
  - RESPIRATORY FAILURE [None]
  - WRONG DRUG ADMINISTERED [None]
